FAERS Safety Report 17727471 (Version 1)
Quarter: 2020Q2

REPORT INFORMATION
  Report Type: Spontaneous
  Country: IT (occurrence: IT)
  Receive Date: 20200430
  Receipt Date: 20200430
  Transmission Date: 20200714
  Serious: Yes (Other)
  Sender: FDA-Public Use
  Company Number: PHHY2019IT211260

PATIENT

DRUGS (2)
  1. MYCOPHENOLATE MOFETIL. [Suspect]
     Active Substance: MYCOPHENOLATE MOFETIL
     Indication: MYOCARDITIS
     Dosage: 2000 MG, QD (STARTED AT A DOSE OF 1000 MG DAILY AND UP-TITRATED IN 4WEEKS?2000 MG DAILY)
     Route: 065
  2. MYCOPHENOLATE MOFETIL. [Suspect]
     Active Substance: MYCOPHENOLATE MOFETIL
     Dosage: 1000 MG, QD
     Route: 065

REACTIONS (3)
  - Diarrhoea [Unknown]
  - Leukopenia [Recovered/Resolved]
  - Product use in unapproved indication [Unknown]
